FAERS Safety Report 9409577 (Version 2)
Quarter: 2013Q3

REPORT INFORMATION
  Report Type: Spontaneous
  Country: DE (occurrence: DE)
  Receive Date: 20130719
  Receipt Date: 20130722
  Transmission Date: 20140515
  Serious: Yes (Death)
  Sender: FDA-Public Use
  Company Number: PHHY2013DE035304

PATIENT
  Sex: Female

DRUGS (3)
  1. GLIVEC [Suspect]
     Indication: GASTROINTESTINAL STROMAL TUMOUR
     Dosage: UNK UKN, UNK
  2. GLIVEC [Suspect]
     Dosage: UNK UKN, UNK
     Dates: start: 2013
  3. SUTENT [Suspect]
     Dosage: UNK UKN, UNK

REACTIONS (5)
  - Cardiac failure [Fatal]
  - Gastrointestinal stromal tumour [Fatal]
  - Malignant neoplasm progression [Fatal]
  - Metastasis [Fatal]
  - Drug intolerance [Unknown]
